FAERS Safety Report 7643613-6 (Version None)
Quarter: 2011Q3

REPORT INFORMATION
  Report Type: 
  Country: None (occurrence: None)
  Receive Date: 20110729
  Receipt Date: 20110718
  Transmission Date: 20111222
  Serious: Yes (Hospitalization)
  Sender: FDA-Public Use
  Company Number: PHHY2011CN67587

PATIENT
  Age: 18 Year
  Sex: Male

DRUGS (1)
  1. CARBAMAZEPINE [Suspect]
     Indication: EPILEPSY
     Dosage: UNK UKN, UNK

REACTIONS (7)
  - ERYTHEMA [None]
  - ENCEPHALITIS VIRAL [None]
  - PYREXIA [None]
  - INDIFFERENCE [None]
  - DRUG ERUPTION [None]
  - PRURITUS GENERALISED [None]
  - DIZZINESS [None]
